FAERS Safety Report 8592102-3 (Version None)
Quarter: 2012Q3

REPORT INFORMATION
  Report Type: 
  Country: None (occurrence: None)
  Receive Date: 20120814
  Receipt Date: 20120807
  Transmission Date: 20120928
  Serious: Yes (Hospitalization, Other)
  Sender: FDA-Public Use
  Company Number: CA-UCBSA-063343

PATIENT
  Age: 47 Year
  Sex: Female

DRUGS (11)
  1. LEVOLEUCOVORIN CALCIUM [Concomitant]
     Dosage: STRENGTH: 5MG
     Route: 048
  2. TYLENOL W/ CODEINE NO. 3 [Concomitant]
     Dosage: 1 TAB;  BID, PRN (AS NEEDED) FOR 100D
  3. HYDROMORPHONE HCL [Concomitant]
     Dosage: 2MG TABLET, 1 TAB QD, PRN (AS NEEDED)
     Route: 048
  4. MELOXICAM [Concomitant]
     Dosage: STRENGTH: 15MG TAB ; 1TAB QD, PRN( AS NECESSARY)
     Route: 048
  5. LYRICA [Concomitant]
     Dosage: STRENGTH: 75MG; 2 TAB TID FOR 100D
  6. DEXILANT [Concomitant]
     Dosage: 60MG CAP; 1 TAB QD FOR 100, AS NECESSARY
  7. CIMZIA [Suspect]
     Indication: RHEUMATOID ARTHRITIS
     Dosage: NO OF DOSES RECIEVED: 9
     Route: 058
     Dates: start: 20110819, end: 20120501
  8. MIRAPEX [Concomitant]
     Dosage: 2 TAB QHS ( EVERY NIGHT) FOR 100D
  9. METHOTREXATE [Concomitant]
     Dates: start: 20080430
  10. CELEXA [Concomitant]
     Dosage: STRENGTH: 20MG ; 2 TAB QD FOR 100D
  11. METHOTREXATE [Concomitant]
     Dosage: STRENGTH: 2.5MG TABLET; 8 TAB QW FOR 13 WEEKS

REACTIONS (3)
  - NEPHROLITHIASIS [None]
  - CONVULSION [None]
  - SEPSIS [None]
